FAERS Safety Report 8302355-4 (Version None)
Quarter: 2012Q2

REPORT INFORMATION
  Report Type: 
  Country: None (occurrence: None)
  Receive Date: 20120420
  Receipt Date: 20120413
  Transmission Date: 20120825
  Serious: Yes (Hospitalization)
  Sender: FDA-Public Use
  Company Number: GB-JNJFOC-20120407744

PATIENT
  Age: 25 Year
  Sex: Male

DRUGS (1)
  1. PALIPERIDONE [Suspect]
     Indication: PRODUCT USED FOR UNKNOWN INDICATION
     Dosage: SECOND INITIATION DOSE
     Route: 030

REACTIONS (6)
  - SWOLLEN TONGUE [None]
  - DYSPNOEA [None]
  - PRURITUS [None]
  - RASH PRURITIC [None]
  - CHILLS [None]
  - HEADACHE [None]
